FAERS Safety Report 16849313 (Version 2)
Quarter: 2020Q3

REPORT INFORMATION
  Report Type: Spontaneous
  Country: GB (occurrence: GB)
  Receive Date: 20190925
  Receipt Date: 20200915
  Transmission Date: 20201102
  Serious: Yes (Life-Threatening, Hospitalization, Other)
  Sender: FDA-Public Use
  Company Number: GB-SUN PHARMACEUTICAL INDUSTRIES LTD-2019R1-221346

PATIENT
  Age: 11 Month
  Sex: Male

DRUGS (2)
  1. PAMIDRONATE [Suspect]
     Active Substance: PAMIDRONATE DISODIUM
     Dosage: GRADUALLY INCREASING DOSES
     Route: 065
  2. PAMIDRONATE [Suspect]
     Active Substance: PAMIDRONATE DISODIUM
     Indication: OSTEOGENESIS IMPERFECTA
     Dosage: FOUR COURSES
     Route: 065

REACTIONS (3)
  - Hyperpyrexia [Recovered/Resolved]
  - Respiratory distress [Recovered/Resolved]
  - Rhabdomyolysis [Recovered/Resolved]
